FAERS Safety Report 4301683-7 (Version None)
Quarter: 2004Q1

REPORT INFORMATION
  Report Type: 
  Country: None (occurrence: None)
  Receive Date: 20040218
  Receipt Date: 20031204
  Transmission Date: 20041129
  Serious: Yes (Life-Threatening, Other)
  Sender: FDA-Public Use
  Company Number: 2003-05-3671

PATIENT
  Age: 51 Year
  Sex: Male
  Weight: 97.5234 kg

DRUGS (3)
  1. PEG-INTRON [Suspect]
     Indication: HEPATITIS C
     Dosage: 150 MCG QW SUBCUTANEOUS
     Route: 058
     Dates: start: 20020809, end: 20030503
  2. REBETOL [Suspect]
     Indication: HEPATITIS C
     Dosage: 800 MG QD ORAL
     Route: 048
     Dates: start: 20020809, end: 20030506
  3. ADVIL [Concomitant]

REACTIONS (4)
  - IDIOPATHIC THROMBOCYTOPENIC PURPURA [None]
  - PAIN IN EXTREMITY [None]
  - RASH PRURITIC [None]
  - STOMATITIS HAEMORRHAGIC [None]
